FAERS Safety Report 9669586 (Version 1)
Quarter: 2013Q4

REPORT INFORMATION
  Report Type: Spontaneous
  Country: US (occurrence: None)
  Receive Date: 20131104
  Receipt Date: 20131104
  Transmission Date: 20140711
  Serious: No
  Sender: FDA-Public Use
  Company Number: None

PATIENT
  Age: 71 Year
  Sex: Female
  Weight: 53.07 kg

DRUGS (1)
  1. LUNESTA [Suspect]
     Indication: SLEEP DISORDER
     Dosage: 8 PILLS ONCE DAILY TAKEN BY MOUTH
     Route: 048
     Dates: start: 20131101, end: 20131102

REACTIONS (1)
  - Peripheral coldness [None]
